FAERS Safety Report 6848691-X (Version None)
Quarter: 2010Q3

REPORT INFORMATION
  Report Type: 
  Country: None (occurrence: None)
  Receive Date: 20100716
  Receipt Date: 20070907
  Transmission Date: 20110219
  Serious: No
  Sender: FDA-Public Use
  Company Number: US-PFIZER INC-2007076027

PATIENT
  Sex: Male
  Weight: 75 kg

DRUGS (4)
  1. CHANTIX [Suspect]
     Indication: SMOKING CESSATION THERAPY
     Dates: start: 20070701
  2. INSULIN [Concomitant]
     Indication: DIABETES MELLITUS
  3. ANTIHYPERTENSIVES [Concomitant]
     Indication: HYPERTENSION
  4. HMG COA REDUCTASE INHIBITORS [Concomitant]
     Indication: HYPERLIPIDAEMIA

REACTIONS (1)
  - DRUG WITHDRAWAL SYNDROME [None]
